FAERS Safety Report 21811012 (Version 1)
Quarter: 2023Q1

REPORT INFORMATION
  Report Type: Spontaneous
  Country: US (occurrence: US)
  Receive Date: 20230103
  Receipt Date: 20230103
  Transmission Date: 20230418
  Serious: Yes (Other)
  Sender: FDA-Public Use
  Company Number: US-MYLANLABS-2022M1143151

PATIENT
  Age: 28 Year
  Sex: Female

DRUGS (7)
  1. ARIPIPRAZOLE [Suspect]
     Active Substance: ARIPIPRAZOLE
     Indication: Bipolar II disorder
     Dosage: 15 MILLIGRAM, QD
     Route: 065
  2. LITHIUM [Suspect]
     Active Substance: LITHIUM
     Indication: Neutropenia
     Dosage: 600 MILLIGRAM (CONTROLLED RELEASE NIGHTLY)
     Route: 065
  3. LURASIDONE [Suspect]
     Active Substance: LURASIDONE
     Indication: Bipolar II disorder
     Dosage: UNK (INITIAL DOSE UNKNOWN)
     Route: 065
  4. LURASIDONE [Suspect]
     Active Substance: LURASIDONE
     Dosage: 40 MILLIGRAM, QD (TITRATED)
     Route: 065
  5. CARIPRAZINE [Suspect]
     Active Substance: CARIPRAZINE
     Indication: Bipolar II disorder
     Dosage: 3 MILLIGRAM, QD
     Route: 065
  6. LEVOTHYROXINE [Concomitant]
     Active Substance: LEVOTHYROXINE
     Indication: Hypothyroidism
     Dosage: 50 MICROGRAM, QD
     Route: 065
  7. PROPRANOLOL [Concomitant]
     Active Substance: PROPRANOLOL HYDROCHLORIDE
     Indication: Akathisia
     Dosage: 10 MILLIGRAM, BID
     Route: 065

REACTIONS (4)
  - Neutropenia [Recovered/Resolved]
  - Drug ineffective [Unknown]
  - Fatigue [Unknown]
  - Off label use [Unknown]
